FAERS Safety Report 9581204 (Version 2)
Quarter: 2013Q4

REPORT INFORMATION
  Report Type: Report from Study
  Country: JP (occurrence: JP)
  Receive Date: 20131002
  Receipt Date: 20131002
  Transmission Date: 20140711
  Serious: Yes (Hospitalization)
  Sender: FDA-Public Use
  Company Number: JP-ROCHE-1155858

PATIENT
  Age: 64 Year
  Sex: Female
  Weight: 53.07 kg

DRUGS (6)
  1. OMALIZUMAB [Suspect]
     Indication: ASTHMA
     Route: 058
     Dates: start: 20100625, end: 20130608
  2. OMALIZUMAB [Suspect]
     Route: 058
     Dates: start: 20101015
  3. OMALIZUMAB [Suspect]
     Route: 065
     Dates: start: 20130608
  4. ADOAIR [Concomitant]
     Route: 065
     Dates: start: 20041221
  5. ONON [Concomitant]
     Route: 065
     Dates: start: 20091221
  6. THEO-SLOW [Concomitant]
     Route: 065
     Dates: start: 20091221

REACTIONS (4)
  - Peritonitis [Unknown]
  - Colon cancer [Recovered/Resolved with Sequelae]
  - Metastases to liver [Unknown]
  - Ileus [Unknown]
